FAERS Safety Report 13960501 (Version 1)
Quarter: 2017Q3

REPORT INFORMATION
  Report Type: Spontaneous
  Country: US (occurrence: US)
  Receive Date: 20170912
  Receipt Date: 20170912
  Transmission Date: 20171128
  Serious: No
  Sender: FDA-Public Use
  Company Number: US-PFIZER INC-2017389989

PATIENT
  Age: 4 Year
  Sex: Female
  Weight: 17 kg

DRUGS (3)
  1. GENOTROPIN [Suspect]
     Active Substance: SOMATROPIN
     Dosage: 0.3 (UNSPECIFIED UNIT) ONCE A DAY AT NIGHT, AT BED TIME, SEVEN DAYS A WEEK
     Route: 030
  2. GENOTROPIN [Suspect]
     Active Substance: SOMATROPIN
     Indication: GROWTH HORMONE DEFICIENCY
     Dosage: 0.6 (UNSPECIFIED UNIT) ONCE A DAY AT NIGHT, AT BED TIME, SEVEN DAYS A WEEK
     Route: 030
  3. LEVOTHYROXINE. [Concomitant]
     Active Substance: LEVOTHYROXINE
     Indication: HYPOTHYROIDISM
     Dosage: 37.5 UG, 1X/DAY
     Route: 048

REACTIONS (5)
  - Incorrect dose administered [Unknown]
  - Underdose [Unknown]
  - Device issue [Unknown]
  - Drug ineffective [Unknown]
  - Incorrect route of drug administration [Unknown]
